FAERS Safety Report 7379532-2 (Version None)
Quarter: 2011Q1

REPORT INFORMATION
  Report Type: 
  Country: None (occurrence: None)
  Receive Date: 20110329
  Receipt Date: 20110318
  Transmission Date: 20110831
  Serious: Yes (Hospitalization, Disabling)
  Sender: FDA-Public Use
  Company Number: SA-BIOGENIDEC-2010BI029692

PATIENT
  Age: 49 Year
  Sex: Male
  Weight: 70 kg

DRUGS (3)
  1. TYSABRI [Suspect]
     Indication: RELAPSING-REMITTING MULTIPLE SCLEROSIS
     Route: 042
     Dates: start: 20080101, end: 20100615
  2. GLIBENCLAMIDE [Concomitant]
  3. METFORMIN [Concomitant]

REACTIONS (5)
  - CONVULSION [None]
  - COGNITIVE DISORDER [None]
  - LOSS OF CONSCIOUSNESS [None]
  - IMMUNE RECONSTITUTION SYNDROME [None]
  - HEMIPLEGIA [None]
